FAERS Safety Report 17544920 (Version 2)
Quarter: 2020Q2

REPORT INFORMATION
  Report Type: Spontaneous
  Country: DE (occurrence: DE)
  Receive Date: 20200316
  Receipt Date: 20200403
  Transmission Date: 20200713
  Serious: No
  Sender: FDA-Public Use
  Company Number: DE-PFIZER INC-2020109685

PATIENT
  Sex: Female

DRUGS (1)
  1. CYTOTEC [Suspect]
     Active Substance: MISOPROSTOL
     Indication: LABOUR INDUCTION
     Dosage: 25 UG, EVERY 2 HOURS
     Dates: start: 20161010, end: 20161011

REACTIONS (4)
  - Complication of delivery [Recovered/Resolved]
  - Off label use [Unknown]
  - Uterine tachysystole [Unknown]
  - Product use in unapproved indication [Unknown]

NARRATIVE: CASE EVENT DATE: 20161010
